FAERS Safety Report 9995824 (Version 1)
Quarter: 2014Q1

REPORT INFORMATION
  Report Type: Spontaneous
  Country: US (occurrence: None)
  Receive Date: 20140310
  Receipt Date: 20140310
  Transmission Date: 20141002
  Serious: Yes (Life-Threatening)
  Sender: FDA-Public Use
  Company Number: None

PATIENT
  Age: 59 Year
  Sex: Male
  Weight: 79.38 kg

DRUGS (1)
  1. PERIDEX ( CHLORHEXIDINE GLUCONATE) 0.12% 3M [Suspect]
     Indication: DENTAL DISORDER PROPHYLAXIS
     Dosage: ORAL RINSE MORNING AND NIGHT TWICE DAILY ORAL RINSE
     Route: 048
     Dates: start: 20140307, end: 20140307

REACTIONS (6)
  - Convulsion [None]
  - Movement disorder [None]
  - Heart rate increased [None]
  - Hypoaesthesia [None]
  - Respiratory disorder [None]
  - Tremor [None]
